FAERS Safety Report 5410078-4 (Version None)
Quarter: 2007Q3

REPORT INFORMATION
  Report Type: 
  Country: None (occurrence: None)
  Receive Date: 20070809
  Receipt Date: 20070801
  Transmission Date: 20080115
  Serious: Yes (Hospitalization)
  Sender: FDA-Public Use
  Company Number: US-AMGEN-STX237118

PATIENT
  Sex: Female

DRUGS (2)
  1. ENBREL [Suspect]
     Indication: GRAFT VERSUS HOST DISEASE
     Route: 058
  2. CELLCEPT [Concomitant]

REACTIONS (1)
  - DEEP VEIN THROMBOSIS [None]
